FAERS Safety Report 6804973-9 (Version None)
Quarter: 2010Q2

REPORT INFORMATION
  Report Type: 
  Country: None (occurrence: None)
  Receive Date: 20100628
  Receipt Date: 20070702
  Transmission Date: 20101027
  Serious: Yes (Other)
  Sender: FDA-Public Use
  Company Number: US-PFIZER INC-2007055073

PATIENT
  Sex: Male

DRUGS (1)
  1. GEODON [Suspect]
     Route: 048
     Dates: start: 20070101

REACTIONS (6)
  - ERYTHEMA [None]
  - FEELING HOT [None]
  - INSOMNIA [None]
  - LARYNGEAL DISORDER [None]
  - TEMPERATURE INTOLERANCE [None]
  - TRISMUS [None]
